FAERS Safety Report 7854124-7 (Version None)
Quarter: 2011Q3

REPORT INFORMATION
  Report Type: 
  Country: None (occurrence: None)
  Receive Date: 20110916
  Receipt Date: 20100730
  Transmission Date: 20111222
  Serious: Yes (Other)
  Sender: FDA-Public Use
  Company Number: 2010SP041773

PATIENT
  Age: 27 Year
  Sex: Female
  Weight: 63.5036 kg

DRUGS (5)
  1. IMPLANON [Suspect]
     Indication: CONTRACEPTION
     Dosage: 1 DF;SBDE
     Route: 059
     Dates: start: 20091120
  2. COMPAZINE [Concomitant]
  3. PRILOSEC [Concomitant]
  4. CLARITIN [Concomitant]
  5. VICODIN [Concomitant]

REACTIONS (5)
  - METRORRHAGIA [None]
  - PAIN [None]
  - OVARIAN CYST [None]
  - PELVIC PAIN [None]
  - NAUSEA [None]
